FAERS Safety Report 6845507-2 (Version None)
Quarter: 2010Q3

REPORT INFORMATION
  Report Type: 
  Country: None (occurrence: None)
  Receive Date: 20100715
  Receipt Date: 20070830
  Transmission Date: 20110219
  Serious: No
  Sender: FDA-Public Use
  Company Number: US-PFIZER INC-2007071017

PATIENT
  Sex: Female
  Weight: 72.7 kg

DRUGS (4)
  1. CHANTIX [Suspect]
     Indication: SMOKING CESSATION THERAPY
     Dates: start: 20070701
  2. MICARDIS [Concomitant]
  3. ESTRADIOL [Concomitant]
  4. PROZAC [Concomitant]

REACTIONS (2)
  - MALAISE [None]
  - NAUSEA [None]
